FAERS Safety Report 8191131-1 (Version None)
Quarter: 2012Q1

REPORT INFORMATION
  Report Type: 
  Country: None (occurrence: None)
  Receive Date: 20120307
  Receipt Date: 20120227
  Transmission Date: 20120608
  Serious: Yes (Hospitalization)
  Sender: FDA-Public Use
  Company Number: IT-GLAXOSMITHKLINE-B0784843A

PATIENT
  Sex: Male

DRUGS (4)
  1. VENTOLIN [Suspect]
     Indication: DYSPNOEA
     Dosage: 600MCG PER DAY
     Route: 055
     Dates: start: 20101128, end: 20101201
  2. AMOXICILLIN AND CLAVULANATE POTASSIUM [Concomitant]
     Route: 048
  3. FLUTICASONE PROPIONATE [Concomitant]
     Route: 055
  4. BETAMETHASONE SODIUM PHOSPHATE [Concomitant]
     Dosage: .5MG PER DAY
     Route: 048

REACTIONS (6)
  - DYSPNOEA [None]
  - PYREXIA [None]
  - OROPHARYNGEAL BLISTERING [None]
  - CONJUNCTIVITIS [None]
  - STEVENS-JOHNSON SYNDROME [None]
  - RASH VESICULAR [None]
